FAERS Safety Report 26049277 (Version 1)
Quarter: 2025Q4

REPORT INFORMATION
  Report Type: Spontaneous
  Country: US (occurrence: US)
  Receive Date: 20251115
  Receipt Date: 20251115
  Transmission Date: 20260117
  Serious: Yes (Life-Threatening)
  Sender: MACLEODS
  Company Number: US-MACLEODS PHARMA-MAC2025056336

PATIENT

DRUGS (2)
  1. LIDOCAINE [Suspect]
     Active Substance: LIDOCAINE
     Indication: Local anaesthesia
     Route: 042
  2. EXPAREL [Suspect]
     Active Substance: BUPIVACAINE
     Indication: Local anaesthesia
     Dosage: 60ML OF 0.25% (150MG) ADMIXED IN THE SAME SYRINGE WITH  20ML (266MG) OF LIPOSOMAL BUPIVACAINE
     Route: 065

REACTIONS (5)
  - Local anaesthetic systemic toxicity [Recovered/Resolved]
  - Generalised tonic-clonic seizure [Recovered/Resolved]
  - Overdose [Unknown]
  - Hypotension [Recovered/Resolved]
  - Muscle twitching [Recovered/Resolved]
